FAERS Safety Report 23844467 (Version 1)
Quarter: 2024Q2

REPORT INFORMATION
  Report Type: Spontaneous
  Country: BR (occurrence: None)
  Receive Date: 20240510
  Receipt Date: 20240510
  Transmission Date: 20240716
  Serious: Yes (Other)
  Sender: FDA-Public Use
  Company Number: 2024A108107

PATIENT
  Age: 64 Year
  Sex: Female

DRUGS (1)
  1. TAGRISSO [Suspect]
     Active Substance: OSIMERTINIB
     Indication: Adenocarcinoma metastatic
     Dosage: UNKNOWN
     Route: 048

REACTIONS (3)
  - Malignant neoplasm progression [Unknown]
  - Pneumonitis [Recovered/Resolved]
  - Diarrhoea [Unknown]
